FAERS Safety Report 13094772 (Version 3)
Quarter: 2017Q3

REPORT INFORMATION
  Report Type: Report from Study
  Country: CN (occurrence: CN)
  Receive Date: 20170106
  Receipt Date: 20170713
  Transmission Date: 20171127
  Serious: Yes (Other)
  Sender: FDA-Public Use
  Company Number: CN-PFIZER INC-2017006418

PATIENT
  Age: 49 Year
  Sex: Female

DRUGS (2)
  1. FLUCONAZOLE. [Suspect]
     Active Substance: FLUCONAZOLE
     Indication: ANTIFUNGAL PROPHYLAXIS
     Dosage: 0.2 G, 1X/DAY (FROM THE DAY OF TRANSPLANTATION)
     Route: 042
  2. FLUCONAZOLE. [Suspect]
     Active Substance: FLUCONAZOLE
     Indication: ANTIFUNGAL PROPHYLAXIS
     Dosage: 0.15 G, 1X/DAY (IN ONE WEEK THROUGH THE END OF WEEK 2 AFTER TRANSPLANTATION)
     Route: 048

REACTIONS (3)
  - Fungal infection [Unknown]
  - Drug ineffective [Unknown]
  - Haemorrhage [Recovered/Resolved]
